FAERS Safety Report 6327813-3 (Version None)
Quarter: 2009Q3

REPORT INFORMATION
  Report Type: 
  Country: None (occurrence: None)
  Receive Date: 20090824
  Receipt Date: 20090818
  Transmission Date: 20100115
  Serious: Yes (Hospitalization)
  Sender: FDA-Public Use
  Company Number: 1000008322

PATIENT
  Age: 59 Year
  Sex: Female

DRUGS (4)
  1. ARMOUR THYROID (THYROID) (TABLETS) [Suspect]
     Indication: HYPOTHYROIDISM
     Dosage: 90 MG ) 90 MG, 1 IN 1 D),ORAL; 75 MG (75 MG,1 IN 1 D),ORAL;  60 MG (60 MG, 1IN 1 D),ORAL
     Route: 048
     Dates: start: 20080101, end: 20081101
  2. ARMOUR THYROID (THYROID) (TABLETS) [Suspect]
     Indication: HYPOTHYROIDISM
     Dosage: 90 MG ) 90 MG, 1 IN 1 D),ORAL; 75 MG (75 MG,1 IN 1 D),ORAL;  60 MG (60 MG, 1IN 1 D),ORAL
     Route: 048
     Dates: start: 20081101, end: 20090101
  3. ARMOUR THYROID (THYROID) (TABLETS) [Suspect]
     Indication: HYPOTHYROIDISM
     Dosage: 90 MG ) 90 MG, 1 IN 1 D),ORAL; 75 MG (75 MG,1 IN 1 D),ORAL;  60 MG (60 MG, 1IN 1 D),ORAL
     Route: 048
     Dates: start: 20080101
  4. ARMOUR THYROID (THYROID) (TABLETS) [Suspect]
     Indication: HYPOTHYROIDISM
     Dosage: 90 MG ) 90 MG, 1 IN 1 D),ORAL; 75 MG (75 MG,1 IN 1 D),ORAL;  60 MG (60 MG, 1IN 1 D),ORAL
     Route: 048
     Dates: start: 20090101

REACTIONS (6)
  - BLOOD CHOLESTEROL INCREASED [None]
  - BLOOD PRESSURE INCREASED [None]
  - CARDIAC STRESS TEST ABNORMAL [None]
  - DIPLOPIA [None]
  - FEELING ABNORMAL [None]
  - SLUGGISHNESS [None]
